FAERS Safety Report 12864956 (Version 1)
Quarter: 2016Q4

REPORT INFORMATION
  Report Type: Spontaneous
  Country: US (occurrence: US)
  Receive Date: 20161019
  Receipt Date: 20161019
  Transmission Date: 20170207
  Serious: Yes (Disabling)
  Sender: FDA-Public Use
  Company Number: None

PATIENT
  Age: 49 Year
  Sex: Male
  Weight: 69.75 kg

DRUGS (1)
  1. SERTRALINE [Suspect]
     Active Substance: SERTRALINE HYDROCHLORIDE
     Indication: INSOMNIA
     Dosage: ?          QUANTITY:0.5 TABLET(S);?
     Route: 048

REACTIONS (18)
  - Dysarthria [None]
  - Hypoacusis [None]
  - Blindness [None]
  - Appetite disorder [None]
  - Quality of life decreased [None]
  - Speech disorder [None]
  - Tinnitus [None]
  - Dysphagia [None]
  - Memory impairment [None]
  - Headache [None]
  - Pain threshold decreased [None]
  - Feeling drunk [None]
  - Suffocation feeling [None]
  - Anosmia [None]
  - Ageusia [None]
  - Stupor [None]
  - Amnesia [None]
  - Cognitive disorder [None]
